FAERS Safety Report 9253332 (Version 1)
Quarter: 2013Q2

REPORT INFORMATION
  Report Type: Spontaneous
  Country: US (occurrence: US)
  Receive Date: 20130424
  Receipt Date: 20130424
  Transmission Date: 20140414
  Serious: No
  Sender: FDA-Public Use
  Company Number: US-009507513-1304USA007983

PATIENT
  Sex: Female

DRUGS (1)
  1. AZASITE [Suspect]
     Indication: EYE INFLAMMATION
     Dosage: 1 DROP IN EACH EYE TWICE A DAY FOR ONE MONTH
     Route: 047
     Dates: start: 20130408

REACTIONS (3)
  - Drug dose omission [Unknown]
  - Product dropper issue [Unknown]
  - No adverse event [Unknown]
